FAERS Safety Report 15230209 (Version 3)
Quarter: 2021Q3

REPORT INFORMATION
  Report Type: Spontaneous
  Country: US (occurrence: US)
  Receive Date: 20180802
  Receipt Date: 20210809
  Transmission Date: 20211014
  Serious: Yes (Other)
  Sender: FDA-Public Use
  Company Number: US-ACCORD-067038

PATIENT
  Age: 67 Year
  Sex: Female
  Weight: 83.91 kg

DRUGS (9)
  1. ADVIL [Concomitant]
     Active Substance: IBUPROFEN
     Dates: start: 2008
  2. AMLODIPINE [Concomitant]
     Active Substance: AMLODIPINE BESYLATE
     Dates: start: 1999
  3. NIFEDIPINE. [Concomitant]
     Active Substance: NIFEDIPINE
     Dates: start: 2016
  4. CRESTOR [Concomitant]
     Active Substance: ROSUVASTATIN CALCIUM
     Dates: start: 1999
  5. MELOXICAM. [Concomitant]
     Active Substance: MELOXICAM
     Dates: start: 2016
  6. PARAPLATIN [Suspect]
     Active Substance: CARBOPLATIN
     Indication: BREAST CANCER
  7. ASPRIN [Concomitant]
     Active Substance: ASPIRIN
     Dates: start: 2008
  8. ISOSORBIDE. [Concomitant]
     Active Substance: ISOSORBIDE
     Dates: start: 1999
  9. DOCETAXEL ACCORD [Suspect]
     Active Substance: DOCETAXEL
     Indication: BREAST CANCER
     Dosage: NUMBER OF CYCLES: 05
     Dates: start: 20150622, end: 20150914

REACTIONS (1)
  - Alopecia [Not Recovered/Not Resolved]

NARRATIVE: CASE EVENT DATE: 20160316
